FAERS Safety Report 17739101 (Version 1)
Quarter: 2020Q2

REPORT INFORMATION
  Report Type: Spontaneous
  Country: US (occurrence: US)
  Receive Date: 20200501
  Receipt Date: 20200501
  Transmission Date: 20200714
  Serious: Yes (Hospitalization)
  Sender: FDA-Public Use
  Company Number: None

PATIENT
  Sex: Male

DRUGS (8)
  1. SPIRONOLACTONE. [Concomitant]
     Active Substance: SPIRONOLACTONE
  2. XIFAXAN [Suspect]
     Active Substance: RIFAXIMIN
     Indication: SUBACUTE HEPATIC FAILURE
     Route: 048
     Dates: start: 20180208
  3. FUROSEMIDE. [Concomitant]
     Active Substance: FUROSEMIDE
  4. OMEPRAZOLE. [Concomitant]
     Active Substance: OMEPRAZOLE
  5. LACTULOSE. [Concomitant]
     Active Substance: LACTULOSE
  6. IRON [Concomitant]
     Active Substance: IRON
  7. POTASSIUM CI [Concomitant]
  8. XIFAXAN [Suspect]
     Active Substance: RIFAXIMIN
     Indication: ACUTE HEPATIC FAILURE
     Route: 048
     Dates: start: 20180208

REACTIONS (2)
  - Seizure [None]
  - Therapy interrupted [None]
